FAERS Safety Report 7117879-5 (Version None)
Quarter: 2010Q4

REPORT INFORMATION
  Report Type: 
  Country: None (occurrence: None)
  Receive Date: 20101118
  Receipt Date: 20101118
  Transmission Date: 20110411
  Serious: Yes (Life-Threatening)
  Sender: FDA-Public Use
  Company Number: None

PATIENT
  Age: 73 Year
  Sex: Male
  Weight: 89 kg

DRUGS (1)
  1. IOPAMIDOL [Suspect]
     Indication: SCAN WITH CONTRAST
     Dosage: 61% MG ONCE IV
     Route: 042
     Dates: start: 20101108, end: 20101108

REACTIONS (4)
  - ANAPHYLACTIC REACTION [None]
  - ANGIOEDEMA [None]
  - DIZZINESS [None]
  - HYPOTENSION [None]
